FAERS Safety Report 21838418 (Version 2)
Quarter: 2023Q1

REPORT INFORMATION
  Report Type: Spontaneous
  Country: IL (occurrence: IL)
  Receive Date: 20230109
  Receipt Date: 20230110
  Transmission Date: 20230417
  Serious: Yes (Hospitalization)
  Sender: FDA-Public Use
  Company Number: IL-BAUSCH-BL-2023-000219

PATIENT
  Age: 26 Year
  Sex: Male

DRUGS (3)
  1. VENLAFAXINE [Suspect]
     Active Substance: VENLAFAXINE HYDROCHLORIDE
     Indication: Product used for unknown indication
     Route: 065
  2. CITALOPRAM [Suspect]
     Active Substance: CITALOPRAM HYDROBROMIDE
     Indication: Product used for unknown indication
     Route: 065
  3. NORTRIPTYLINE [Suspect]
     Active Substance: NORTRIPTYLINE
     Indication: New daily persistent headache
     Dosage: AS NEEDED, TAKEN AN EXTRA DOSE OF NORTRIPTYLINE THE DAY PRIOR TO PRESENTATION
     Route: 065

REACTIONS (2)
  - Antidepressant discontinuation syndrome [Recovered/Resolved]
  - Serotonin syndrome [Recovered/Resolved]
